FAERS Safety Report 15539803 (Version 2)
Quarter: 2018Q4

REPORT INFORMATION
  Report Type: Report from Study
  Country: JP (occurrence: JP)
  Receive Date: 20181023
  Receipt Date: 20181214
  Transmission Date: 20190205
  Serious: No
  Sender: FDA-Public Use
  Company Number: JP-B.I. PHARMACEUTICALS,INC./RIDGEFIELD-2018-NB-005432

PATIENT
  Age: 74 Year
  Sex: Male
  Weight: 67.8 kg

DRUGS (18)
  1. SOLANAX [Concomitant]
     Active Substance: ALPRAZOLAM
     Indication: PRODUCT USED FOR UNKNOWN INDICATION
     Route: 065
  2. REBAMIPIDE [Concomitant]
     Active Substance: REBAMIPIDE
     Indication: PRODUCT USED FOR UNKNOWN INDICATION
     Route: 065
  3. BIBF 1120 [Suspect]
     Active Substance: NINTEDANIB
     Route: 065
     Dates: start: 20170928
  4. BAYASPIRIN [Concomitant]
     Active Substance: ASPIRIN
     Indication: PRODUCT USED FOR UNKNOWN INDICATION
     Route: 065
  5. CANDESARTAN. [Concomitant]
     Active Substance: CANDESARTAN
     Indication: PRODUCT USED FOR UNKNOWN INDICATION
     Route: 065
  6. AMBROXOL HYDROCHLORIDE [Concomitant]
     Active Substance: AMBROXOL HYDROCHLORIDE
     Indication: PRODUCT USED FOR UNKNOWN INDICATION
     Route: 065
  7. ELSAMET [Concomitant]
     Indication: PRODUCT USED FOR UNKNOWN INDICATION
     Route: 065
  8. OMEPRAZOLE. [Concomitant]
     Active Substance: OMEPRAZOLE
     Indication: PRODUCT USED FOR UNKNOWN INDICATION
     Route: 065
  9. COLDRIN [Concomitant]
     Active Substance: ACETAMINOPHEN\PSEUDOEPHEDRINE HYDROCHLORIDE
     Indication: PRODUCT USED FOR UNKNOWN INDICATION
     Route: 065
  10. ETIZOLAM [Concomitant]
     Active Substance: ETIZOLAM
     Indication: PRODUCT USED FOR UNKNOWN INDICATION
     Route: 065
  11. SULPIRIDE [Concomitant]
     Active Substance: SULPIRIDE
     Indication: PRODUCT USED FOR UNKNOWN INDICATION
     Route: 065
  12. URIEF [Concomitant]
     Active Substance: SILODOSIN
     Indication: PRODUCT USED FOR UNKNOWN INDICATION
     Route: 065
  13. CRESTOR [Concomitant]
     Active Substance: ROSUVASTATIN CALCIUM
     Indication: PRODUCT USED FOR UNKNOWN INDICATION
     Route: 065
     Dates: end: 2017
  14. DOMPERIDONE [Concomitant]
     Active Substance: DOMPERIDONE
     Indication: PRODUCT USED FOR UNKNOWN INDICATION
     Route: 065
  15. BIBF 1120 [Suspect]
     Active Substance: NINTEDANIB
     Indication: IDIOPATHIC PULMONARY FIBROSIS
     Route: 065
     Dates: start: 20170405, end: 20170927
  16. AMLODIPINE [Concomitant]
     Active Substance: AMLODIPINE BESYLATE
     Indication: PRODUCT USED FOR UNKNOWN INDICATION
     Route: 065
  17. CARBOCISTEINE [Concomitant]
     Active Substance: CARBOCYSTEINE
     Indication: PRODUCT USED FOR UNKNOWN INDICATION
     Route: 065
  18. SYMBICORT [Concomitant]
     Active Substance: BUDESONIDE\FORMOTEROL FUMARATE DIHYDRATE
     Indication: PRODUCT USED FOR UNKNOWN INDICATION
     Route: 055

REACTIONS (3)
  - Idiopathic pulmonary fibrosis [Not Recovered/Not Resolved]
  - Constipation [Not Recovered/Not Resolved]
  - Diarrhoea [Recovered/Resolved]

NARRATIVE: CASE EVENT DATE: 20170905
